FAERS Safety Report 9540605 (Version 2)
Quarter: 2013Q4

REPORT INFORMATION
  Report Type: Report from Study
  Country: JP (occurrence: JP)
  Receive Date: 20130920
  Receipt Date: 20131001
  Transmission Date: 20140711
  Serious: Yes (Death, Other)
  Sender: FDA-Public Use
  Company Number: JP-TAKEDA-2013TJP000737

PATIENT
  Age: 77 Year
  Sex: Male
  Weight: 63 kg

DRUGS (14)
  1. LANSOPRAZOLE [Suspect]
     Dosage: 15 MG, UNK
     Route: 048
     Dates: start: 20130815, end: 20130926
  2. BAYASPIRIN [Concomitant]
     Indication: THROMBOSIS PROPHYLAXIS
     Route: 048
     Dates: end: 20120926
  3. MAINTATE [Concomitant]
     Indication: HYPERTENSION
     Route: 048
     Dates: end: 20120926
  4. TANATRIL [Concomitant]
     Indication: HYPERTENSION
     Route: 048
     Dates: start: 20120815, end: 20120926
  5. LANIRAPID [Concomitant]
     Route: 048
     Dates: start: 20120805, end: 20120926
  6. PLAVIX [Concomitant]
     Indication: MYOCARDIAL INFARCTION
     Route: 048
     Dates: start: 20120811, end: 20120926
  7. LASIX [Concomitant]
     Indication: CARDIAC FAILURE
     Route: 048
     Dates: end: 20120926
  8. LASIX [Concomitant]
     Route: 048
     Dates: end: 20120926
  9. ZYLORIC [Concomitant]
     Indication: HYPERURICAEMIA
     Route: 048
     Dates: end: 20120926
  10. PIMENOL [Concomitant]
     Route: 048
     Dates: start: 20120805, end: 20120926
  11. SIGMART [Concomitant]
     Indication: MYOCARDIAL INFARCTION
     Route: 048
     Dates: end: 20120926
  12. MAGMITT [Concomitant]
     Indication: CONSTIPATION
     Route: 048
     Dates: end: 20120926
  13. MAGMITT [Concomitant]
     Route: 048
     Dates: end: 20120926
  14. CRAVIT [Concomitant]
     Indication: BRONCHITIS CHRONIC
     Route: 048
     Dates: end: 20120926

REACTIONS (2)
  - Cardio-respiratory arrest [Fatal]
  - Aortic rupture [Fatal]
